FAERS Safety Report 9869578 (Version 2)
Quarter: 2014Q1

REPORT INFORMATION
  Report Type: Spontaneous
  Country: US (occurrence: US)
  Receive Date: 20140205
  Receipt Date: 20140205
  Transmission Date: 20141002
  Serious: No
  Sender: FDA-Public Use
  Company Number: US-PFIZER INC-2013315441

PATIENT
  Age: 63 Year
  Sex: Male
  Weight: 91.61 kg

DRUGS (7)
  1. ENBREL [Suspect]
     Dosage: 50 MG, WEEKLY
     Route: 058
  2. LYRICA [Suspect]
     Dosage: UNK
  3. NEURONTIN [Suspect]
     Dosage: UNK
  4. METHOTREXATE SODIUM [Suspect]
     Dosage: UNK
  5. HUMIRA [Suspect]
     Dosage: UNK
  6. REMICADE [Concomitant]
     Dosage: UNK
  7. ALLOPURINOL [Concomitant]
     Dosage: UNK

REACTIONS (3)
  - Drug hypersensitivity [Unknown]
  - Drug ineffective [Unknown]
  - Treatment failure [Unknown]
